FAERS Safety Report 23666062 (Version 1)
Quarter: 2024Q1

REPORT INFORMATION
  Report Type: Spontaneous
  Country: IT (occurrence: IT)
  Receive Date: 20240323
  Receipt Date: 20240323
  Transmission Date: 20240410
  Serious: Yes (Other)
  Sender: FDA-Public Use
  Company Number: IT-AMGEN-ITASP2024057824

PATIENT

DRUGS (5)
  1. ADALIMUMAB [Suspect]
     Active Substance: ADALIMUMAB\ISOPROPYL ALCOHOL
     Indication: Crohn^s disease
     Dosage: UNK
     Route: 065
  2. ADALIMUMAB [Suspect]
     Active Substance: ADALIMUMAB\ISOPROPYL ALCOHOL
     Indication: Colitis ulcerative
  3. VEDOLIZUMAB [Concomitant]
     Active Substance: VEDOLIZUMAB
     Indication: Crohn^s disease
     Dosage: 108 MILLIGRAM, Q2WK
     Route: 058
  4. VEDOLIZUMAB [Concomitant]
     Active Substance: VEDOLIZUMAB
     Indication: Colitis ulcerative
     Dosage: 300 MILLIGRAM, Q8WK (AT WEEKS 0 AND 2)
     Route: 042
  5. VEDOLIZUMAB [Concomitant]
     Active Substance: VEDOLIZUMAB
     Dosage: 300 MILLIGRAM, Q8WK (AT WEEKS 0 AND 2)
     Route: 042

REACTIONS (8)
  - Colitis ulcerative [Unknown]
  - Crohn^s disease [Unknown]
  - Uveitis [Unknown]
  - Injection site reaction [Unknown]
  - COVID-19 [Unknown]
  - Arthralgia [Unknown]
  - Urticaria [Unknown]
  - Tooth abscess [Unknown]
